FAERS Safety Report 10443953 (Version 1)
Quarter: 2014Q3

REPORT INFORMATION
  Report Type: Spontaneous
  Country: US (occurrence: US)
  Receive Date: 20140910
  Receipt Date: 20140910
  Transmission Date: 20150326
  Serious: No
  Sender: FDA-Public Use
  Company Number: US-TARO-2014P1000782

PATIENT
  Sex: Female

DRUGS (2)
  1. ACETAMINOPHEN. [Suspect]
     Active Substance: ACETAMINOPHEN
  2. WARFARIN [Suspect]
     Active Substance: WARFARIN

REACTIONS (3)
  - Drug interaction [Unknown]
  - Headache [Unknown]
  - Coagulation time abnormal [Unknown]
